FAERS Safety Report 22320706 (Version 2)
Quarter: 2023Q2

REPORT INFORMATION
  Report Type: Spontaneous
  Country: FR (occurrence: FR)
  Receive Date: 20230515
  Receipt Date: 20230530
  Transmission Date: 20230722
  Serious: Yes (Hospitalization)
  Sender: FDA-Public Use
  Company Number: FR-TEVA-2023-FR-2886452

PATIENT
  Age: 65 Year
  Sex: Male

DRUGS (7)
  1. DARUNAVIR [Suspect]
     Active Substance: DARUNAVIR
     Indication: HIV infection
     Route: 065
  2. TENOFOVIR ALAFENAMIDE [Suspect]
     Active Substance: TENOFOVIR ALAFENAMIDE
     Indication: HIV infection
     Route: 065
  3. EMTRICITABINE [Suspect]
     Active Substance: EMTRICITABINE
     Indication: HIV infection
     Route: 065
  4. ELVITEGRAVIR [Suspect]
     Active Substance: ELVITEGRAVIR
     Indication: HIV infection
     Route: 065
  5. COBICISTAT [Suspect]
     Active Substance: COBICISTAT
     Indication: HIV infection
     Route: 065
  6. AMPHOTERICIN B [Suspect]
     Active Substance: AMPHOTERICIN B
     Indication: Visceral leishmaniasis
     Dosage: LIPOSOMAL , TOTAL DOSE 45 MG/KG
     Route: 042
  7. MILTEFOSINE [Suspect]
     Active Substance: MILTEFOSINE
     Indication: Visceral leishmaniasis
     Dosage: 100 MILLIGRAM DAILY; 50 MG TWICE A DAY
     Route: 065

REACTIONS (4)
  - Drug ineffective [Unknown]
  - Visceral leishmaniasis [Recovering/Resolving]
  - Leishmaniasis [Unknown]
  - Eye disorder [Unknown]

NARRATIVE: CASE EVENT DATE: 20200101
